FAERS Safety Report 6146179-5 (Version None)
Quarter: 2009Q2

REPORT INFORMATION
  Report Type: 
  Country: None (occurrence: None)
  Receive Date: 20090407
  Receipt Date: 20090402
  Transmission Date: 20091009
  Serious: Yes (Death)
  Sender: FDA-Public Use
  Company Number: JP-NOVOPROD-285900

PATIENT
  Sex: Male
  Weight: 65 kg

DRUGS (2)
  1. LEVEMIR [Suspect]
     Indication: TYPE 2 DIABETES MELLITUS
     Dosage: 20 IU, QD
     Dates: start: 20080807, end: 20090101
  2. INSULIN ASPART [Concomitant]
     Dosage: 14-12-14
     Route: 058

REACTIONS (1)
  - DEATH [None]
